FAERS Safety Report 20568600 (Version 1)
Quarter: 2022Q1

REPORT INFORMATION
  Report Type: Spontaneous
  Country: US (occurrence: US)
  Receive Date: 20220308
  Receipt Date: 20220308
  Transmission Date: 20220424
  Serious: Yes (Other)
  Sender: FDA-Public Use
  Company Number: US-sptaiwan-2022SUN000744

PATIENT
  Age: 37 Year
  Sex: Female

DRUGS (1)
  1. LATUDA [Suspect]
     Active Substance: LURASIDONE HYDROCHLORIDE
     Indication: Product used for unknown indication
     Dosage: 30 MG, QD (HALF OF 60MG)
     Route: 048

REACTIONS (4)
  - Suicidal ideation [Unknown]
  - Depression [Unknown]
  - Wrong technique in product usage process [Unknown]
  - Off label use [Unknown]
